FAERS Safety Report 9055915 (Version 2)
Quarter: 2013Q4

REPORT INFORMATION
  Report Type: Spontaneous
  Country: GB (occurrence: GB)
  Receive Date: 20130206
  Receipt Date: 20131010
  Transmission Date: 20140711
  Serious: Yes (Disabling)
  Sender: FDA-Public Use
  Company Number: GB-009507513-1302GBR000569

PATIENT
  Age: 58 Year
  Sex: Male

DRUGS (3)
  1. SINEMET PLUS [Suspect]
     Indication: PARKINSON^S DISEASE
     Dosage: 1 AND A HALF TABLETS, 187.5 MG, 6/1DAY
     Route: 048
     Dates: start: 20130107, end: 20130109
  2. APOMORPHINE HYDROCHLORIDE [Concomitant]
     Indication: PARKINSON^S DISEASE
     Dosage: 6.5 MG, QH
     Route: 058
     Dates: start: 20120224
  3. ENTACAPONE [Concomitant]
     Indication: PARKINSON^S DISEASE
     Dosage: 200 MG, QD
     Route: 048
     Dates: start: 20090701

REACTIONS (2)
  - Product formulation issue [Unknown]
  - No therapeutic response [Recovered/Resolved]
